FAERS Safety Report 8450704-9 (Version None)
Quarter: 2012Q2

REPORT INFORMATION
  Report Type: 
  Country: None (occurrence: None)
  Receive Date: 20120620
  Receipt Date: 20120613
  Transmission Date: 20120825
  Serious: Yes (Other)
  Sender: FDA-Public Use
  Company Number: US-PFIZER INC-2012144083

PATIENT
  Sex: Female
  Weight: 71 kg

DRUGS (5)
  1. REBIF [Concomitant]
     Indication: MULTIPLE SCLEROSIS
     Dosage: 44 UG, 3X/WEEK
  2. PAXIL [Concomitant]
     Indication: DEPRESSION
     Dosage: 20 MG, DAILY
  3. LIPITOR [Suspect]
     Dosage: UNK, DAILY
     Route: 048
     Dates: end: 20120601
  4. ATORVASTATIN CALCIUM [Suspect]
     Indication: BLOOD CHOLESTEROL ABNORMAL
     Dosage: 10 MG, DAILY
     Dates: start: 20120601, end: 20120612
  5. LIPITOR [Suspect]
     Indication: BLOOD CHOLESTEROL ABNORMAL
     Dosage: 20 MG, DAILY
     Route: 048
     Dates: end: 20120601

REACTIONS (1)
  - HYPERTENSION [None]
